FAERS Safety Report 21514079 (Version 1)
Quarter: 2022Q4

REPORT INFORMATION
  Report Type: Spontaneous
  Country: IT (occurrence: IT)
  Receive Date: 20221027
  Receipt Date: 20221027
  Transmission Date: 20230112
  Serious: Yes (Other)
  Sender: FDA-Public Use
  Company Number: None

PATIENT
  Age: 75 Year
  Sex: Male
  Weight: 80 kg

DRUGS (5)
  1. PEMETREXED [Suspect]
     Active Substance: PEMETREXED
     Indication: Lung adenocarcinoma
     Dosage: TOTAL DOSAGE 890 MG EVERY 21 DAYS CONSISTING OF 500 MG (LOT D4TP1A) AND 100 MG (LOT D36J2F), THERAPY
     Route: 065
     Dates: start: 20220120, end: 20220727
  2. KEYTRUDA [Suspect]
     Active Substance: PEMBROLIZUMAB
     Indication: Lung adenocarcinoma
     Dosage: UNIT DOSE : 200 MG,FREQUENCY TIME : 21 DAYS
     Route: 065
  3. PREDNISONE [Concomitant]
     Active Substance: PREDNISONE
     Indication: Product used for unknown indication
     Dosage: THE DAY AFTER CHEMO, UNIT DOSE :  25 MG, FREQUENCY TIME : 21 DAYS
  4. PREDNISONE [Concomitant]
     Active Substance: PREDNISONE
     Dosage: THE DAY BEFORE CHEMO,  50 MG, FREQUENCY TIME : 21 DAYS
  5. FOLIC ACID [Concomitant]
     Active Substance: FOLIC ACID
     Indication: Product used for unknown indication
     Dosage: UNIT DOSE : 400 MG,

REACTIONS (3)
  - Dermatitis bullous [Recovering/Resolving]
  - Lichenification [Recovering/Resolving]
  - Rash [Recovering/Resolving]

NARRATIVE: CASE EVENT DATE: 20220815
